FAERS Safety Report 9865845 (Version 1)
Quarter: 2014Q1

REPORT INFORMATION
  Report Type: Spontaneous
  Country: US (occurrence: US)
  Receive Date: 20140203
  Receipt Date: 20140203
  Transmission Date: 20141002
  Serious: No
  Sender: FDA-Public Use
  Company Number: US-ALLERGAN-1311857US

PATIENT
  Age: 68 Year
  Sex: Female

DRUGS (3)
  1. RESTASIS [Suspect]
     Indication: DRY EYE
     Dosage: 2 GTT, BID
     Route: 047
     Dates: start: 201307
  2. VICODIN [Concomitant]
     Indication: ARTHRITIS
     Dosage: UNK
  3. ORAL DIABETES MEDICATION NOS [Concomitant]
     Indication: DIABETES MELLITUS
     Dosage: UNK, PRN
     Route: 048

REACTIONS (2)
  - Lacrimation increased [Not Recovered/Not Resolved]
  - Eye pain [Recovered/Resolved]
